FAERS Safety Report 6184977-2 (Version None)
Quarter: 2009Q2

REPORT INFORMATION
  Report Type: 
  Country: None (occurrence: None)
  Receive Date: 20090511
  Receipt Date: 20090219
  Transmission Date: 20091009
  Serious: No
  Sender: FDA-Public Use
  Company Number: A0769507A

PATIENT
  Age: 63 Year
  Sex: Female

DRUGS (6)
  1. COREG CR [Suspect]
     Indication: HYPERTENSION
     Dosage: 10MG PER DAY
     Route: 048
     Dates: start: 20090202, end: 20090201
  2. LEVOTHYROX [Concomitant]
  3. PAROXETINE [Concomitant]
  4. PRAVASTATIN [Concomitant]
  5. SINGULAIR [Concomitant]
  6. VITAMIN [Concomitant]

REACTIONS (3)
  - ABNORMAL DREAMS [None]
  - ARTHRALGIA [None]
  - NECK PAIN [None]
